FAERS Safety Report 9275073 (Version 1)
Quarter: 2013Q2

REPORT INFORMATION
  Report Type: Spontaneous
  Country: BR (occurrence: BR)
  Receive Date: 20130507
  Receipt Date: 20130507
  Transmission Date: 20140414
  Serious: Yes (Other)
  Sender: FDA-Public Use
  Company Number: PHHY2013BR043908

PATIENT
  Sex: Male
  Weight: 42 kg

DRUGS (2)
  1. RITALINA [Suspect]
     Dosage: 4.5 DF, (1.5 AT 6.00AM, 1.5 AT 11AM AND 1.5 AT 15.00AM)
     Route: 048
  2. ATENSINA [Concomitant]
     Indication: INSOMNIA
     Dosage: 0.5 DF, DAILY
     Route: 048

REACTIONS (4)
  - Mental retardation [Not Recovered/Not Resolved]
  - Aggression [Not Recovered/Not Resolved]
  - Irritability [Not Recovered/Not Resolved]
  - Nervousness [Not Recovered/Not Resolved]
